FAERS Safety Report 25343437 (Version 1)
Quarter: 2025Q2

REPORT INFORMATION
  Report Type: Report from Study
  Country: US (occurrence: US)
  Receive Date: 20250521
  Receipt Date: 20250521
  Transmission Date: 20250716
  Serious: No
  Sender: MALLINCKRODT
  Company Number: US-MALLINCKRODT-MNK202502304

PATIENT
  Sex: Female

DRUGS (2)
  1. CORTICOTROPIN [Suspect]
     Active Substance: CORTICOTROPIN
     Indication: Iridocyclitis
     Dosage: 40 UNITS
     Route: 058
     Dates: start: 20220809
  2. CORTICOTROPIN [Suspect]
     Active Substance: CORTICOTROPIN

REACTIONS (5)
  - Blood pressure decreased [Recovering/Resolving]
  - Feeling abnormal [Unknown]
  - Fatigue [Unknown]
  - Injection site haemorrhage [Unknown]
  - Injection site extravasation [Recovered/Resolved]
